FAERS Safety Report 15897421 (Version 1)
Quarter: 2019Q1

REPORT INFORMATION
  Report Type: Report from Study
  Country: MX (occurrence: MX)
  Receive Date: 20190131
  Receipt Date: 20190131
  Transmission Date: 20190417
  Serious: Yes (Hospitalization, Other)
  Sender: FDA-Public Use
  Company Number: PHHY2019MX018556

PATIENT
  Age: 56 Year
  Sex: Male
  Weight: 79 kg

DRUGS (7)
  1. PRADAXAR [Concomitant]
     Active Substance: DABIGATRAN ETEXILATE MESYLATE
     Indication: ANTICOAGULANT THERAPY
     Dosage: 150 MG, BID (1 IN THE MORNING AND 1 IN THE NIGHT) (STARTED A MONTH AGO)
     Route: 048
  2. ALDACTONE [Concomitant]
     Active Substance: SPIRONOLACTONE
     Indication: DIURETIC THERAPY
     Dosage: 1 DF, QD (1 IN THE MORNING) (STARTED 6 MONTHS AGO)
     Route: 048
  3. DIURMESSEL [Concomitant]
     Indication: DIURETIC THERAPY
     Dosage: 2 DF, BID (1 IN THE MORNING AND 1 IN THE NIGHT) (STARTED 6 MONTHS AGO)
     Route: 048
  4. ENTRESTO [Suspect]
     Active Substance: SACUBITRIL\VALSARTAN
     Indication: ARRHYTHMIA
  5. ENTRESTO [Suspect]
     Active Substance: SACUBITRIL\VALSARTAN
     Indication: HYPERTENSION
     Dosage: 3/4 OF 100 MG, BID (1/4 IN THE MORNING AND 1/2 AT NIGHT)
     Route: 048
  6. BRAXAN [Concomitant]
     Indication: ARRHYTHMIA
     Dosage: 1 DF, QD (IN THE MORNING) (SINCE 6 MONTHS AGO)
     Route: 048
  7. SOMAZINA [Concomitant]
     Active Substance: CITICOLINE
     Indication: HEAD INJURY
     Dosage: 1 DF, QD
     Route: 048
     Dates: start: 201812

REACTIONS (6)
  - Prescribed underdose [Unknown]
  - Wrong technique in product usage process [Unknown]
  - Product use in unapproved indication [Unknown]
  - Syncope [Recovered/Resolved]
  - Thrombosis [Recovered/Resolved]
  - Gallbladder disorder [Recovering/Resolving]

NARRATIVE: CASE EVENT DATE: 201811
